FAERS Safety Report 9344918 (Version 4)
Quarter: 2013Q4

REPORT INFORMATION
  Report Type: Spontaneous
  Country: US (occurrence: US)
  Receive Date: 20130612
  Receipt Date: 20131122
  Transmission Date: 20140711
  Serious: Yes (Other)
  Sender: FDA-Public Use
  Company Number: US-BAYER-2013-071830

PATIENT
  Age: 35 Year
  Sex: Female

DRUGS (3)
  1. MIRENA [Suspect]
     Indication: CONTRACEPTION
     Dosage: 20 MCG/24HR, CONT
     Route: 015
     Dates: start: 201102, end: 201212
  2. METRONIDAZOLE [Concomitant]
     Indication: INFECTION
     Dosage: 500 MG, BID
     Route: 048
  3. PROZAC [Concomitant]
     Dosage: UNK, 1 CAPSULE EVERY DAY
     Route: 048

REACTIONS (15)
  - Pelvic infection [None]
  - Adnexa uteri pain [None]
  - Pelvic inflammatory disease [None]
  - Device expulsion [None]
  - Infection [None]
  - Body temperature [None]
  - Dizziness [None]
  - Pelvic pain [None]
  - Premenstrual syndrome [None]
  - Adenomyosis [None]
  - Genital disorder female [None]
  - Depression [None]
  - Confusional state [None]
  - Placenta praevia [None]
  - Infection [Not Recovered/Not Resolved]
